FAERS Safety Report 8328431-8 (Version None)
Quarter: 2012Q2

REPORT INFORMATION
  Report Type: 
  Country: None (occurrence: None)
  Receive Date: 20120502
  Receipt Date: 20120427
  Transmission Date: 20120825
  Serious: Yes (Other)
  Sender: FDA-Public Use
  Company Number: PHEH2011US03726

PATIENT
  Sex: Female

DRUGS (35)
  1. CALCIUM [Concomitant]
     Dosage: 50000 TWICE WEEK
  2. FLONASE [Concomitant]
     Dosage: UNK UKN, UNK
  3. PROZAC [Concomitant]
     Dosage: 20 MG, UNK
  4. FUROSEMIDE [Concomitant]
     Dosage: 40 MG, UNK
  5. PRILOFEC [Concomitant]
     Dosage: 20 MG, UNK
  6. VITAMIN E [Concomitant]
     Dosage: 500 MG, UNK
  7. VITAMIN E [Concomitant]
     Dosage: 1 DF/WEEKS
  8. CORSEN D [Concomitant]
     Dosage: FOUR TIMES DAILY
  9. MINERAL TAB [Concomitant]
     Dosage: UNK UKN, UNK
  10. TUMBS [Concomitant]
     Dosage: UNK UKN, UNK
  11. SOMA [Concomitant]
     Dosage: 350 MG, UNK
  12. SINGULAIR [Concomitant]
     Dosage: 10 MG, UNK
  13. RELAPHEN [Concomitant]
  14. MILATON [Concomitant]
     Dosage: 4 MG, UNK
  15. CARVEDILOL [Concomitant]
     Dosage: 1.5 DF, UNK
  16. ERGOCALCIFEROL [Concomitant]
     Dosage: UNK UKN, UNK
  17. PREMPRO [Concomitant]
     Dosage: 0.625 MG, UNK
  18. VITAMIN B-12 [Concomitant]
     Dosage: UNK UKN, UNK
  19. SIMVAFTIN [Concomitant]
     Dosage: UNK UKN, UNK
  20. VITAMIN D [Concomitant]
     Dosage: 50000 UNITS
  21. ACIDOLPHALUS [Concomitant]
     Dosage: UNK UKN, UNK
  22. BEANO [Concomitant]
     Dosage: 1 DF, BID PRN
  23. PRAVASTATIN [Concomitant]
     Dosage: 40 MG, UNK
  24. CHLOR-TRIMETON [Concomitant]
     Dosage: 1 DF, QID
  25. VITAMIN C [Concomitant]
     Dosage: 1500 MG/WEEK
  26. RECLAST [Suspect]
     Indication: OSTEOPOROSIS
     Dosage: 5 MG/100 ML PER YEAR
     Route: 042
     Dates: start: 20110901
  27. TRAZODONE HCL [Concomitant]
     Dosage: 50 MG, UNK
  28. LOVAZA [Concomitant]
     Dosage: UNK UKN, UNK
  29. PROGESTERONE [Concomitant]
     Dosage: 5 MG, UNK
  30. ACIDOPHILUS [Concomitant]
     Dosage: 1 DF, QD
  31. DULCOLAX [Concomitant]
     Dosage: 1 DF, QD PRN
  32. SPIRONOLACTONE [Concomitant]
     Dosage: 25 MG, UNK
  33. COREG [Concomitant]
     Dosage: 75 MG, TID
  34. HYDROCODONE BITARTRATE [Concomitant]
     Dosage: 10 MG FOUR TIMES DAILY
  35. CARISOPRODOL [Concomitant]
     Dosage: 350 MG, UNK

REACTIONS (32)
  - RIB FRACTURE [None]
  - UPPER RESPIRATORY TRACT INFECTION [None]
  - OROPHARYNGEAL PAIN [None]
  - ARTHRALGIA [None]
  - SPIDER VEIN [None]
  - FALL [None]
  - CONTUSION [None]
  - SINUSITIS [None]
  - DYSPNOEA [None]
  - RHINORRHOEA [None]
  - PLANTAR FASCIITIS [None]
  - NAUSEA [None]
  - TOOTHACHE [None]
  - ABDOMINAL PAIN [None]
  - PAIN IN JAW [None]
  - PRURITUS [None]
  - DIARRHOEA [None]
  - SNEEZING [None]
  - FIBROMYALGIA [None]
  - MYALGIA [None]
  - CHEILITIS [None]
  - CHRONIC FATIGUE SYNDROME [None]
  - OSTEOPOROSIS [None]
  - MUSCULOSKELETAL CHEST PAIN [None]
  - FLATULENCE [None]
  - HAEMATOMA [None]
  - ARTHRITIS [None]
  - INFLUENZA LIKE ILLNESS [None]
  - PRODUCTIVE COUGH [None]
  - RASH [None]
  - EXCORIATION [None]
  - HEADACHE [None]
